FAERS Safety Report 16057539 (Version 4)
Quarter: 2019Q3

REPORT INFORMATION
  Report Type: Spontaneous
  Country: US (occurrence: US)
  Receive Date: 20190311
  Receipt Date: 20190701
  Transmission Date: 20191004
  Serious: No
  Sender: FDA-Public Use
  Company Number: US-PFIZER INC-2019096464

PATIENT
  Age: 67 Year
  Sex: Female

DRUGS (5)
  1. PRAVASTATIN. [Concomitant]
     Active Substance: PRAVASTATIN
     Indication: BLOOD CHOLESTEROL ABNORMAL
     Dosage: 40 MG, 1X/DAY
     Dates: start: 2019
  2. XELJANZ XR [Suspect]
     Active Substance: TOFACITINIB CITRATE
     Indication: RHEUMATOID ARTHRITIS
     Dosage: 11 MG
     Dates: start: 2017
  3. PREDNISONE. [Concomitant]
     Active Substance: PREDNISONE
     Indication: JOINT SWELLING
     Dosage: 2.5 MG, AS NEEDED [1X A DAY]
     Dates: start: 2014
  4. XELJANZ XR [Suspect]
     Active Substance: TOFACITINIB CITRATE
     Dosage: 5 MG, 2X/DAY
     Dates: start: 201701
  5. HYDROCODONE [Concomitant]
     Active Substance: HYDROCODONE
     Indication: ARTHRALGIA
     Dosage: UNK UNK, 4X/DAY (1X4)
     Dates: start: 2018

REACTIONS (1)
  - Pain [Unknown]
